FAERS Safety Report 10969915 (Version 1)
Quarter: 2015Q1

REPORT INFORMATION
  Report Type: Spontaneous
  Country: US (occurrence: None)
  Receive Date: 20150226
  Receipt Date: 20150226
  Transmission Date: 20150721
  Serious: No
  Sender: FDA-Public Use
  Company Number: TPA2010A02237

PATIENT
  Age: 40 Year
  Sex: Male

DRUGS (2)
  1. ULORIC [Suspect]
     Active Substance: FEBUXOSTAT
     Indication: GOUT
     Route: 048
  2. IBUPROFEN (IBUPROFEN) [Concomitant]
     Active Substance: IBUPROFEN

REACTIONS (2)
  - Oedema peripheral [None]
  - Thrombosis [None]
